FAERS Safety Report 7621184 (Version 4)
Quarter: 2014Q1

REPORT INFORMATION
  Report Type: Spontaneous
  Country: US (occurrence: US)
  Receive Date: 20101008
  Receipt Date: 20140121
  Transmission Date: 20141002
  Serious: Yes (Other)
  Sender: FDA-Public Use
  Company Number: US-BAYER-201035887NA

PATIENT
  Age: 16 Year
  Sex: Female
  Weight: 88 kg

DRUGS (6)
  1. YASMIN [Suspect]
     Indication: PRODUCT USED FOR UNKNOWN INDICATION
     Route: 048
     Dates: start: 20051122, end: 20071106
  2. GLUCOPHAGE XR [Concomitant]
     Dosage: 500 MG, UNK
     Route: 048
     Dates: start: 20050110
  3. TOBRAMYCIN [Concomitant]
     Dosage: 0.3 %, UNK
     Dates: start: 20070328
  4. THERMAZENE [Concomitant]
     Dosage: 1 %, UNK
     Dates: start: 20070510
  5. PRO-AIR [Concomitant]
     Dosage: 90 ?G, UNK
     Route: 055
     Dates: start: 20070814
  6. GLUCOPHAGE [Concomitant]
     Dosage: UNK
     Dates: start: 2006

REACTIONS (4)
  - Cholelithiasis [Recovered/Resolved]
  - Gallbladder disorder [Unknown]
  - Abdominal pain upper [Recovered/Resolved]
  - Nausea [Recovered/Resolved]
